FAERS Safety Report 7825178-9 (Version None)
Quarter: 2011Q4

REPORT INFORMATION
  Report Type: 
  Country: None (occurrence: None)
  Receive Date: 20111019
  Receipt Date: 20111011
  Transmission Date: 20120403
  Serious: Yes (Life-Threatening)
  Sender: FDA-Public Use
  Company Number: JP-PFIZER INC-2011248935

PATIENT
  Age: 28 Year
  Sex: Female

DRUGS (1)
  1. INDERAL [Suspect]
     Dosage: TOOK 40, 10 MG TABLETS
     Route: 048

REACTIONS (2)
  - INTENTIONAL OVERDOSE [None]
  - SUICIDE ATTEMPT [None]
